FAERS Safety Report 4839602-7 (Version None)
Quarter: 2005Q4

REPORT INFORMATION
  Report Type: 
  Country: None (occurrence: None)
  Receive Date: 20051125
  Receipt Date: 20051110
  Transmission Date: 20060501
  Serious: Yes (Other)
  Sender: FDA-Public Use
  Company Number: HQWYE552215NOV05

PATIENT
  Sex: Female

DRUGS (5)
  1. EFFEXOR XR [Suspect]
     Dosage: SEE IMAGE, ORAL
     Route: 048
     Dates: start: 20040501, end: 20041101
  2. EFFEXOR XR [Suspect]
     Dosage: SEE IMAGE, ORAL
     Route: 048
     Dates: start: 20041101, end: 20050101
  3. EFFEXOR XR [Suspect]
     Dosage: SEE IMAGE, ORAL
     Route: 048
     Dates: start: 20050101, end: 20050701
  4. EFFEXOR XR [Suspect]
     Dosage: SEE IMAGE, ORAL
     Route: 048
     Dates: start: 20050701, end: 20050901
  5. EFFEXOR XR [Suspect]
     Dosage: SEE IMAGE, ORAL
     Route: 048
     Dates: start: 20051001, end: 20051104

REACTIONS (10)
  - BALANCE DISORDER [None]
  - DEHYDRATION [None]
  - DIARRHOEA [None]
  - DIZZINESS [None]
  - DRUG WITHDRAWAL SYNDROME [None]
  - DYSGRAPHIA [None]
  - LOSS OF CONSCIOUSNESS [None]
  - MENTAL IMPAIRMENT [None]
  - PARAESTHESIA [None]
  - VISION BLURRED [None]
